FAERS Safety Report 5468282-5 (Version None)
Quarter: 2007Q3

REPORT INFORMATION
  Report Type: 
  Country: None (occurrence: None)
  Receive Date: 20070926
  Receipt Date: 20070912
  Transmission Date: 20080115
  Serious: Yes (Other)
  Sender: FDA-Public Use
  Company Number: US-ELI_LILLY_AND_COMPANY-US200709002305

PATIENT
  Age: 49 Year
  Sex: Female

DRUGS (8)
  1. CYMBALTA [Suspect]
     Indication: PAIN
     Dosage: 60 MG, DAILY (1/D)
     Route: 048
     Dates: start: 20070512
  2. ACCUPRIL [Concomitant]
     Indication: BLOOD PRESSURE INCREASED
  3. MAXZIDE [Concomitant]
     Indication: BLOOD PRESSURE INCREASED
  4. NEURONTIN [Concomitant]
  5. ATENOLOL [Concomitant]
     Indication: CHEST PAIN
  6. METFORMIN [Concomitant]
     Indication: DIABETES MELLITUS
  7. ACIPHEX [Concomitant]
     Indication: OESOPHAGEAL DISORDER
  8. CELEXA [Concomitant]

REACTIONS (5)
  - BENIGN NEOPLASM [None]
  - CEREBROVASCULAR ACCIDENT [None]
  - FALL [None]
  - MALIGNANT MELANOMA [None]
  - SQUAMOUS CELL CARCINOMA OF SKIN [None]
